FAERS Safety Report 14180631 (Version 6)
Quarter: 2018Q4

REPORT INFORMATION
  Report Type: Report from Study
  Country: US (occurrence: US)
  Receive Date: 20171110
  Receipt Date: 20181228
  Transmission Date: 20190204
  Serious: Yes (Life-Threatening, Other)
  Sender: FDA-Public Use
  Company Number: PHEH2017US036459

PATIENT
  Age: 42 Year
  Sex: Female
  Weight: 120 kg

DRUGS (3)
  1. GILENYA [Suspect]
     Active Substance: FINGOLIMOD HYDROCHLORIDE
     Dosage: 0.5 MG, QD
     Route: 048
     Dates: end: 20150601
  2. GILENYA [Suspect]
     Active Substance: FINGOLIMOD HYDROCHLORIDE
     Indication: MULTIPLE SCLEROSIS
     Dosage: 0.5 MG, QD
     Route: 048
     Dates: start: 20130219
  3. GILENYA [Suspect]
     Active Substance: FINGOLIMOD HYDROCHLORIDE
     Dosage: 0.5 MG, QOD
     Route: 048
     Dates: start: 20150101

REACTIONS (13)
  - Skin lesion [Unknown]
  - Headache [Unknown]
  - Lymphocyte count decreased [Unknown]
  - Urinary tract infection [Recovered/Resolved]
  - Skin infection [Recovering/Resolving]
  - Wound infection staphylococcal [Unknown]
  - Prescribed underdose [Unknown]
  - Rash [Unknown]
  - White blood cell count decreased [Recovering/Resolving]
  - Drug monitoring procedure not performed [Unknown]
  - Central nervous system lesion [Unknown]
  - Arthropod bite [Unknown]
  - Wound [Unknown]

NARRATIVE: CASE EVENT DATE: 2013
